FAERS Safety Report 10098338 (Version 1)
Quarter: 2014Q2

REPORT INFORMATION
  Report Type: Spontaneous
  Country: US (occurrence: US)
  Receive Date: 20140423
  Receipt Date: 20140423
  Transmission Date: 20141212
  Serious: Yes (Other)
  Sender: FDA-Public Use
  Company Number: US-BAYER-2014-055215

PATIENT
  Age: 36 Year
  Sex: Female

DRUGS (1)
  1. ALKA-SELTZER ORIGINAL [Suspect]
     Dosage: 1 DF, ONCE
     Route: 067
     Dates: start: 20140411, end: 20140411

REACTIONS (3)
  - Vaginal haemorrhage [None]
  - Vulvovaginal pain [None]
  - Intentional product misuse [None]
